FAERS Safety Report 7091790-0 (Version None)
Quarter: 2010Q4

REPORT INFORMATION
  Report Type: 
  Country: None (occurrence: None)
  Receive Date: 20101109
  Receipt Date: 20101105
  Transmission Date: 20110411
  Serious: Yes (Hospitalization)
  Sender: FDA-Public Use
  Company Number: HR-ROXANE LABORATORIES, INC.-2010-RO-01463RO

PATIENT
  Age: 36 Year
  Sex: Male

DRUGS (5)
  1. DIAZEPAM [Suspect]
     Indication: AGITATION
     Dosage: 10 MG
     Route: 030
  2. DIAZEPAM [Suspect]
     Dosage: 60 MG
     Route: 048
  3. CLOZAPINE [Suspect]
     Indication: MANIA
     Dosage: 200 MG
  4. VALPROIC ACID [Suspect]
     Indication: MANIA
     Dosage: 1000 MG
  5. PROMAZINE HYDROCHLORIDE [Suspect]
     Indication: AGITATION
     Dosage: 50 MG
     Route: 030

REACTIONS (1)
  - NEUROLEPTIC MALIGNANT SYNDROME [None]
